FAERS Safety Report 10025556 (Version 1)
Quarter: 2014Q1

REPORT INFORMATION
  Report Type: Spontaneous
  Country: US (occurrence: US)
  Receive Date: 20140320
  Receipt Date: 20140320
  Transmission Date: 20141002
  Serious: Yes (Hospitalization)
  Sender: FDA-Public Use
  Company Number: US-UPSHER-SMITH LABORATORIES, INC.-14000543

PATIENT
  Age: 71 Year
  Sex: Male

DRUGS (12)
  1. DIVALPROEX SODIUM [Suspect]
     Indication: CONVULSION
     Dosage: 250 MG, TID
     Route: 048
     Dates: start: 20140104, end: 20140123
  2. ROPINIROLE [Concomitant]
     Dosage: UNK
  3. METOPROLOL SUCCINATE [Concomitant]
     Dosage: UNK
  4. FINASTERIDE [Concomitant]
     Dosage: UNK
  5. LANTUS [Concomitant]
     Dosage: UNK
  6. ASPIRIN [Concomitant]
     Dosage: UNK
  7. ALLOPURINOL [Concomitant]
     Dosage: UNK
  8. TAMSULOSIN [Concomitant]
     Dosage: UNK
  9. DILTIAZEM [Concomitant]
     Dosage: UNK
  10. DIOVAN [Concomitant]
     Dosage: UNK
  11. POTASSIUM CHLORIDE [Concomitant]
     Dosage: UNK
  12. LEVOTHYROXINE [Concomitant]
     Dosage: UNK

REACTIONS (2)
  - Drug ineffective [Recovered/Resolved]
  - Anticonvulsant drug level below therapeutic [Unknown]
